FAERS Safety Report 19487374 (Version 1)
Quarter: 2021Q3

REPORT INFORMATION
  Report Type: Report from Study
  Country: US (occurrence: US)
  Receive Date: 20210702
  Receipt Date: 20210702
  Transmission Date: 20211014
  Serious: Yes (Hospitalization, Other)
  Sender: FDA-Public Use
  Company Number: US-BRISTOL-MYERS SQUIBB COMPANY-BMS-2021-062561

PATIENT
  Sex: Female

DRUGS (1)
  1. APIXABAN [Suspect]
     Active Substance: APIXABAN
     Indication: EMBOLISM VENOUS
     Route: 065

REACTIONS (9)
  - Fall [Unknown]
  - Pleural effusion [Unknown]
  - Epistaxis [Unknown]
  - Diarrhoea [Unknown]
  - Cardiac disorder [Unknown]
  - Traumatic lung injury [Unknown]
  - Internal haemorrhage [Unknown]
  - Rib fracture [Unknown]
  - Gastroenteritis viral [Unknown]

NARRATIVE: CASE EVENT DATE: 2020
